FAERS Safety Report 7088596-5 (Version None)
Quarter: 2010Q4

REPORT INFORMATION
  Report Type: 
  Country: None (occurrence: None)
  Receive Date: 20101029
  Receipt Date: 20101013
  Transmission Date: 20110411
  Serious: Yes (Disabling, Other)
  Sender: FDA-Public Use
  Company Number: ACO_01892_2010

PATIENT
  Sex: Female
  Weight: 45.3597 kg

DRUGS (3)
  1. AMPYRA [Suspect]
     Indication: MULTIPLE SCLEROSIS
     Dosage: (10 MG BID ORAL)
     Route: 048
     Dates: start: 20100812, end: 20100812
  2. ZOFRAN [Concomitant]
  3. PROGESTERONE [Concomitant]

REACTIONS (3)
  - DYSSTASIA [None]
  - FALL [None]
  - TOOTH FRACTURE [None]
